FAERS Safety Report 21302488 (Version 1)
Quarter: 2022Q3

REPORT INFORMATION
  Report Type: Spontaneous
  Country: PR (occurrence: PR)
  Receive Date: 20220907
  Receipt Date: 20220907
  Transmission Date: 20221027
  Serious: No
  Sender: FDA-Public Use
  Company Number: PR-ABBVIE-22K-131-4527987-00

PATIENT
  Age: 73 Year
  Sex: Female

DRUGS (1)
  1. VENCLEXTA [Suspect]
     Active Substance: VENETOCLAX
     Indication: Chronic lymphocytic leukaemia
     Route: 048

REACTIONS (1)
  - Vomiting [Unknown]
